FAERS Safety Report 11498045 (Version 1)
Quarter: 2015Q3

REPORT INFORMATION
  Report Type: Spontaneous
  Country: None (occurrence: GB)
  Receive Date: 20150911
  Receipt Date: 20150911
  Transmission Date: 20151125
  Serious: Yes (Death)
  Sender: FDA-Public Use
  Company Number: GB-MEDAC PHARMA, INC.-1041856

PATIENT
  Age: 66 Year
  Sex: Male

DRUGS (2)
  1. METOJECT PEN [Suspect]
     Active Substance: METHOTREXATE
  2. HUMIRA [Concomitant]
     Active Substance: ADALIMUMAB

REACTIONS (2)
  - Liver disorder [Unknown]
  - Death [Fatal]

NARRATIVE: CASE EVENT DATE: 20150814
